FAERS Safety Report 18465239 (Version 1)
Quarter: 2020Q4

REPORT INFORMATION
  Report Type: Spontaneous
  Country: US (occurrence: US)
  Receive Date: 20201105
  Receipt Date: 20201105
  Transmission Date: 20210114
  Serious: Yes (Other)
  Sender: FDA-Public Use
  Company Number: US-DRREDDYS-USA/USA/20/0128755

PATIENT
  Sex: Female

DRUGS (7)
  1. DOXORUBICIN HYDROCHLORIDE LIPOSOME INJECTION 20 MG/10 ML (2 MG/ML) AND [Suspect]
     Active Substance: DOXORUBICIN HYDROCHLORIDE
     Indication: DESMOID TUMOUR
  2. METHOTREXATE. [Suspect]
     Active Substance: METHOTREXATE
     Indication: DESMOID TUMOUR
  3. PAZOPANIB [Suspect]
     Active Substance: PAZOPANIB
     Indication: DESMOID TUMOUR
  4. HYDROXYCARBAMIDE [Suspect]
     Active Substance: HYDROXYUREA
     Indication: DESMOID TUMOUR
  5. DACARBAZINE. [Suspect]
     Active Substance: DACARBAZINE
     Indication: DESMOID TUMOUR
  6. SORAFENIB [Suspect]
     Active Substance: SORAFENIB
     Indication: DESMOID TUMOUR
  7. VINBLASTINE [Suspect]
     Active Substance: VINBLASTINE
     Indication: DESMOID TUMOUR

REACTIONS (3)
  - Neoplasm progression [Recovering/Resolving]
  - Desmoid tumour [Recovering/Resolving]
  - Impaired quality of life [Recovering/Resolving]
